FAERS Safety Report 13923972 (Version 1)
Quarter: 2017Q3

REPORT INFORMATION
  Report Type: Spontaneous
  Country: US (occurrence: US)
  Receive Date: 20170831
  Receipt Date: 20170831
  Transmission Date: 20171127
  Serious: Yes (Other)
  Sender: FDA-Public Use
  Company Number: US-BIOGEN-2017BI00451846

PATIENT
  Sex: Female

DRUGS (2)
  1. TYSABRI [Suspect]
     Active Substance: NATALIZUMAB
     Route: 065
     Dates: start: 20160210, end: 20170706
  2. TYSABRI [Suspect]
     Active Substance: NATALIZUMAB
     Indication: MULTIPLE SCLEROSIS
     Route: 065
     Dates: start: 20110128, end: 20110812

REACTIONS (8)
  - Asthenia [Unknown]
  - Heart rate decreased [Unknown]
  - Blood pressure decreased [Unknown]
  - Migraine [Recovered/Resolved]
  - Back pain [Recovered/Resolved]
  - Arthropathy [Recovered/Resolved]
  - Loss of consciousness [Unknown]
  - Respiratory disorder [Recovered/Resolved]
